FAERS Safety Report 10022186 (Version 2)
Quarter: 2014Q2

REPORT INFORMATION
  Report Type: Report from Study
  Country: GB (occurrence: GB)
  Receive Date: 20140319
  Receipt Date: 20140414
  Transmission Date: 20141212
  Serious: Yes (Hospitalization)
  Sender: FDA-Public Use
  Company Number: GB-GLAXOSMITHKLINE-B0976900A

PATIENT
  Sex: Female
  Weight: 57.8 kg

DRUGS (2)
  1. PAZOPANIB [Suspect]
     Indication: BLADDER NEOPLASM
     Dosage: 800MG PER DAY
     Route: 048
     Dates: start: 20140227, end: 20140308
  2. RANITIDINE [Concomitant]
     Indication: PROPHYLAXIS
     Dosage: 150MG TWICE PER DAY
     Route: 048
     Dates: start: 2010

REACTIONS (1)
  - Anal fistula [Recovered/Resolved with Sequelae]
